FAERS Safety Report 9848551 (Version 1)
Quarter: 2014Q1

REPORT INFORMATION
  Report Type: Report from Study
  Country: US (occurrence: US)
  Receive Date: 20140128
  Receipt Date: 20140128
  Transmission Date: 20141002
  Serious: Yes (Other)
  Sender: FDA-Public Use
  Company Number: PHEH2014US001815

PATIENT
  Age: 4 Year
  Sex: Female
  Weight: 15.42 kg

DRUGS (1)
  1. TOBI [Suspect]
     Dosage: 1 DF, BID (300 MG/5 ML)
     Route: 055
     Dates: start: 201110

REACTIONS (2)
  - Pseudomonas test positive [Unknown]
  - Drug administered to patient of inappropriate age [Unknown]
